FAERS Safety Report 8535714-5 (Version None)
Quarter: 2012Q3

REPORT INFORMATION
  Report Type: 
  Country: None (occurrence: None)
  Receive Date: 20120725
  Receipt Date: 20120721
  Transmission Date: 20120928
  Serious: No
  Sender: FDA-Public Use
  Company Number: US-PFIZER INC-2012176855

PATIENT
  Sex: Female
  Weight: 79.37 kg

DRUGS (1)
  1. DETROL LA [Suspect]
     Indication: HYPERTONIC BLADDER
     Dosage: 4 MG, 1X/DAY
     Route: 048
     Dates: start: 20120720, end: 20120721

REACTIONS (4)
  - PARAESTHESIA [None]
  - PAIN [None]
  - PRURITUS [None]
  - RASH MORBILLIFORM [None]
